FAERS Safety Report 5588057-6 (Version None)
Quarter: 2008Q1

REPORT INFORMATION
  Report Type: 
  Country: None (occurrence: None)
  Receive Date: 20080111
  Receipt Date: 20071231
  Transmission Date: 20080703
  Serious: Yes (Other)
  Sender: FDA-Public Use
  Company Number: US-PFIZER INC-2008000499

PATIENT
  Sex: Female

DRUGS (2)
  1. NORVASC [Suspect]
  2. NORVASC [Suspect]

REACTIONS (2)
  - DRY MOUTH [None]
  - LIP NEOPLASM MALIGNANT STAGE UNSPECIFIED [None]
